FAERS Safety Report 11787032 (Version 1)
Quarter: 2015Q4

REPORT INFORMATION
  Report Type: Spontaneous
  Country: US (occurrence: US)
  Receive Date: 20151130
  Receipt Date: 20151130
  Transmission Date: 20160305
  Serious: No
  Sender: FDA-Public Use
  Company Number: US-FRI-1000074019

PATIENT
  Age: 84 Year
  Sex: Female

DRUGS (4)
  1. SIMVASTATIN. [Concomitant]
     Active Substance: SIMVASTATIN
  2. AMLODIPINE [Concomitant]
     Active Substance: AMLODIPINE BESYLATE
     Dosage: 5MG
  3. BYSTOLIC [Concomitant]
     Active Substance: NEBIVOLOL HYDROCHLORIDE
     Dosage: 10MG
  4. NAMENDA [Suspect]
     Active Substance: MEMANTINE HYDROCHLORIDE
     Indication: DEMENTIA
     Dosage: 5 MG
     Dates: start: 20150115, end: 20150119

REACTIONS (1)
  - Gingival bleeding [Recovered/Resolved]

NARRATIVE: CASE EVENT DATE: 20150116
